FAERS Safety Report 14582709 (Version 1)
Quarter: 2018Q1

REPORT INFORMATION
  Report Type: Spontaneous
  Country: CH (occurrence: CH)
  Receive Date: 20180228
  Receipt Date: 20180228
  Transmission Date: 20180509
  Serious: Yes (Hospitalization, Other)
  Sender: FDA-Public Use
  Company Number: CH-SA-2018SA034623

PATIENT
  Age: 1 Day
  Sex: Female
  Weight: 1.41 kg

DRUGS (2)
  1. SINTROM [Suspect]
     Active Substance: ACENOCOUMAROL
     Route: 064
     Dates: start: 2004, end: 20170323
  2. CLEXANE [Suspect]
     Active Substance: ENOXAPARIN SODIUM
     Route: 064
     Dates: start: 20170323

REACTIONS (7)
  - Fungal infection [Recovered/Resolved]
  - Neonatal respiratory distress [Recovered/Resolved]
  - Congenital cerebral cyst [Unknown]
  - Hyperbilirubinaemia neonatal [Recovered/Resolved]
  - Premature baby [Recovered/Resolved]
  - Hypertonia neonatal [Unknown]
  - Foetal exposure during pregnancy [Unknown]

NARRATIVE: CASE EVENT DATE: 20170903
